FAERS Safety Report 7030999-9 (Version None)
Quarter: 2010Q4

REPORT INFORMATION
  Report Type: 
  Country: None (occurrence: None)
  Receive Date: 20101006
  Receipt Date: 20100520
  Transmission Date: 20110411
  Serious: No
  Sender: FDA-Public Use
  Company Number: US-BRISTOL-MYERS SQUIBB COMPANY-15117583

PATIENT

DRUGS (1)
  1. KENALOG-40 [Suspect]

REACTIONS (4)
  - HYPOTENSION [None]
  - INJECTION SITE PAIN [None]
  - NAUSEA [None]
  - PALLOR [None]
